FAERS Safety Report 17640749 (Version 1)
Quarter: 2020Q2

REPORT INFORMATION
  Report Type: Spontaneous
  Country: US (occurrence: US)
  Receive Date: 20200407
  Receipt Date: 20200407
  Transmission Date: 20200713
  Serious: Yes (Hospitalization, Disabling, Other)
  Sender: FDA-Public Use
  Company Number: US-ASTRAZENECA-2020SE44810

PATIENT
  Age: 52 Year
  Sex: Male
  Weight: 108.9 kg

DRUGS (58)
  1. KEFLEX [Concomitant]
     Active Substance: CEPHALEXIN
  2. ALBUTEROL. [Concomitant]
     Active Substance: ALBUTEROL
  3. CITALOPRAM [Concomitant]
     Active Substance: CITALOPRAM HYDROBROMIDE
  4. LISINOPRIL. [Concomitant]
     Active Substance: LISINOPRIL
  5. NEXIUM 24HR [Suspect]
     Active Substance: ESOMEPRAZOLE MAGNESIUM
     Indication: GASTROOESOPHAGEAL REFLUX DISEASE
     Route: 048
  6. PRILOSEC [Suspect]
     Active Substance: OMEPRAZOLE MAGNESIUM
     Indication: GASTROOESOPHAGEAL REFLUX DISEASE
     Dosage: GENERIC
     Route: 065
     Dates: start: 2012
  7. PRILOSEC OTC [Suspect]
     Active Substance: OMEPRAZOLE MAGNESIUM
     Indication: GASTROOESOPHAGEAL REFLUX DISEASE
     Route: 048
     Dates: start: 2005
  8. PREVACID [Suspect]
     Active Substance: LANSOPRAZOLE
     Indication: GASTROOESOPHAGEAL REFLUX DISEASE
     Route: 065
     Dates: start: 20000401, end: 20160101
  9. MELOXICAM. [Concomitant]
     Active Substance: MELOXICAM
  10. LISINOPRIL. [Concomitant]
     Active Substance: LISINOPRIL
  11. IBUPROFEN. [Concomitant]
     Active Substance: IBUPROFEN
     Indication: PAIN
  12. HEPARIN [Concomitant]
     Active Substance: HEPARIN SODIUM
     Dosage: 1 TABLET 4 X DAY
  13. POTASSIUM CHLORIDE. [Concomitant]
     Active Substance: POTASSIUM CHLORIDE
  14. PLAVIX [Concomitant]
     Active Substance: CLOPIDOGREL BISULFATE
  15. ONDANSETRON [Concomitant]
     Active Substance: ONDANSETRON
  16. ADVAIR HFA [Concomitant]
     Active Substance: FLUTICASONE PROPIONATE\SALMETEROL XINAFOATE
  17. LIDOCAINE. [Concomitant]
     Active Substance: LIDOCAINE
  18. AMPICILIN [Concomitant]
     Active Substance: AMPICILLIN
     Indication: BACTERIAL INFECTION
  19. ROCEPHIN [Concomitant]
     Active Substance: CEFTRIAXONE SODIUM
  20. CIPRO [Concomitant]
     Active Substance: CIPROFLOXACIN HYDROCHLORIDE
  21. ROLAIDS [Concomitant]
     Active Substance: CALCIUM CARBONATE\MAGNESIUM HYDROXIDE
     Dosage: 1 TABLET 4 X DAY
  22. IPRATROPIUM [Concomitant]
     Active Substance: IPRATROPIUM
     Dosage: 1 TABLET 4 X DAY
  23. PREDNISONE. [Concomitant]
     Active Substance: PREDNISONE
  24. KAPIDEX [Concomitant]
     Active Substance: DEXLANSOPRAZOLE
  25. METOCLOPRAMIDE. [Concomitant]
     Active Substance: METOCLOPRAMIDE
  26. LORAZEPAM. [Concomitant]
     Active Substance: LORAZEPAM
  27. PROMETHAZINE [Concomitant]
     Active Substance: PROMETHAZINE HYDROCHLORIDE
  28. LACTULOSE. [Concomitant]
     Active Substance: LACTULOSE
  29. IPRATROPIUM [Concomitant]
     Active Substance: IPRATROPIUM
  30. ZITHROMAX [Concomitant]
     Active Substance: AZITHROMYCIN DIHYDRATE
  31. BENAZEPRIL [Concomitant]
     Active Substance: BENAZEPRIL HYDROCHLORIDE
  32. PEPCID [Concomitant]
     Active Substance: FAMOTIDINE
  33. OXYCODONE [Concomitant]
     Active Substance: OXYCODONE
     Dosage: 1 TABLET 4 X DAY
  34. CEFTRIAXONE. [Concomitant]
     Active Substance: CEFTRIAXONE
  35. HYOSCYAMINE. [Concomitant]
     Active Substance: HYOSCYAMINE
  36. FAMOTIDINE. [Concomitant]
     Active Substance: FAMOTIDINE
  37. AZITHROMYCIN ANHYDROUS. [Concomitant]
     Active Substance: AZITHROMYCIN ANHYDROUS
  38. NEXIUM [Suspect]
     Active Substance: ESOMEPRAZOLE MAGNESIUM
     Indication: GASTROOESOPHAGEAL REFLUX DISEASE
     Dosage: GENERIC
     Route: 065
  39. PREVACID [Suspect]
     Active Substance: LANSOPRAZOLE
     Indication: GASTROOESOPHAGEAL REFLUX DISEASE
     Dosage: GENERIC
     Route: 065
  40. CETAMINOPHEN [Concomitant]
     Indication: HEADACHE
  41. ZANTAC [Concomitant]
     Active Substance: RANITIDINE HYDROCHLORIDE
     Dosage: ZANTAC 150 (OTC)
  42. MUPIROCIN. [Concomitant]
     Active Substance: MUPIROCIN
  43. DEXILANT [Suspect]
     Active Substance: DEXLANSOPRAZOLE
     Indication: GASTROOESOPHAGEAL REFLUX DISEASE
     Route: 065
     Dates: start: 2001
  44. PANTOPRAZOLE [Suspect]
     Active Substance: PANTOPRAZOLE
     Indication: GASTROOESOPHAGEAL REFLUX DISEASE
     Route: 065
     Dates: start: 2010
  45. TRAMADOL. [Concomitant]
     Active Substance: TRAMADOL
     Indication: PAIN
  46. FUROSEMIDE. [Concomitant]
     Active Substance: FUROSEMIDE
  47. BENADRYL [Concomitant]
     Active Substance: DIPHENHYDRAMINE HYDROCHLORIDE
     Indication: HYPERSENSITIVITY
  48. ACETAMINOPHEN. [Concomitant]
     Active Substance: ACETAMINOPHEN
  49. ISOSORBIDE MONONITRATE. [Concomitant]
     Active Substance: ISOSORBIDE MONONITRATE
  50. VENTOLIN [Concomitant]
     Active Substance: ALBUTEROL SULFATE
  51. BENZONATATE. [Concomitant]
     Active Substance: BENZONATATE
  52. SIMVASTATIN. [Concomitant]
     Active Substance: SIMVASTATIN
  53. NEXIUM [Suspect]
     Active Substance: ESOMEPRAZOLE MAGNESIUM
     Indication: GASTROOESOPHAGEAL REFLUX DISEASE
     Route: 048
     Dates: start: 20000401, end: 20160101
  54. PRILOSEC [Suspect]
     Active Substance: OMEPRAZOLE MAGNESIUM
     Indication: GASTROOESOPHAGEAL REFLUX DISEASE
     Route: 048
     Dates: start: 20000401, end: 20160101
  55. ONDANSETRON [Concomitant]
     Active Substance: ONDANSETRON
     Dosage: 1 TABLET 4 X DAY
  56. COMBIVENT [Concomitant]
     Active Substance: ALBUTEROL SULFATE\IPRATROPIUM BROMIDE
  57. SPIRIVA [Concomitant]
     Active Substance: TIOTROPIUM BROMIDE MONOHYDRATE
  58. ZOLPIDEM [Concomitant]
     Active Substance: ZOLPIDEM TARTRATE

REACTIONS (4)
  - Chronic kidney disease [Unknown]
  - Nephropathy [Unknown]
  - Renal failure [Not Recovered/Not Resolved]
  - Acute kidney injury [Unknown]

NARRATIVE: CASE EVENT DATE: 2009
